FAERS Safety Report 4311529-9 (Version None)
Quarter: 2004Q1

REPORT INFORMATION
  Report Type: 
  Country: None (occurrence: None)
  Receive Date: 20040303
  Receipt Date: 20040303
  Transmission Date: 20041129
  Serious: Yes (Hospitalization)
  Sender: FDA-Public Use
  Company Number: None

PATIENT
  Age: 73 Year
  Sex: Male
  Weight: 69 kg

DRUGS (10)
  1. SPIRONOLACTONE [Suspect]
     Indication: CARDIAC FAILURE CONGESTIVE
     Dosage: 25 MG DAILY ORAL
     Route: 048
     Dates: start: 20030711, end: 20030826
  2. FERROUS SULFATE TAB [Concomitant]
  3. FUROSEMIDE [Concomitant]
  4. RANITIDINE [Concomitant]
  5. NITROGLYCERIN [Concomitant]
  6. SUBLINGUAL [Concomitant]
  7. LISINOPRIL [Concomitant]
  8. IPRATROPIUM BROMIDE [Concomitant]
  9. HALDOL [Concomitant]
  10. FLUNISOLIDE [Concomitant]

REACTIONS (5)
  - CHEST PAIN [None]
  - FLUID OVERLOAD [None]
  - HYPERKALAEMIA [None]
  - ISCHAEMIC CARDIOMYOPATHY [None]
  - ORTHOPNOEA [None]
